FAERS Safety Report 4885605-6 (Version None)
Quarter: 2005Q4

REPORT INFORMATION
  Report Type: 
  Country: None (occurrence: None)
  Receive Date: 20051220
  Receipt Date: 20050406
  Transmission Date: 20060501
  Serious: Yes (Other)
  Sender: FDA-Public Use
  Company Number: HQWYE026702FEB05

PATIENT
  Age: 18 Year
  Sex: Female

DRUGS (4)
  1. EFFEXOR XR [Suspect]
     Indication: DEPRESSION
     Dosage: 75 MG 1X PER 1 DAY, ORAL
     Route: 048
     Dates: start: 20040201
  2. TRAZODONE HCL [Concomitant]
  3. NEURONTIN [Concomitant]
  4. GEODON [Concomitant]

REACTIONS (1)
  - PREGNANCY TEST FALSE POSITIVE [None]
